FAERS Safety Report 14632306 (Version 2)
Quarter: 2018Q1

REPORT INFORMATION
  Report Type: Spontaneous
  Country: DE (occurrence: DE)
  Receive Date: 20180313
  Receipt Date: 20180313
  Transmission Date: 20180509
  Serious: Yes (Death, Other)
  Sender: FDA-Public Use
  Company Number: DE-CELGENEUS-DEU-20180208908

PATIENT
  Age: 51 Year
  Sex: Female
  Weight: 64 kg

DRUGS (4)
  1. GILOTRIF [Suspect]
     Active Substance: AFATINIB
     Dosage: 40 MILLIGRAM
     Route: 065
     Dates: start: 20141101, end: 201504
  2. ABRAXANE [Suspect]
     Active Substance: PACLITAXEL
     Indication: LUNG ADENOCARCINOMA
     Route: 041
     Dates: start: 201501
  3. GILOTRIF [Suspect]
     Active Substance: AFATINIB
     Indication: LUNG ADENOCARCINOMA
     Dosage: 30 MILLIGRAM
     Route: 065
     Dates: start: 201504, end: 201512
  4. CARBOPLATIN. [Suspect]
     Active Substance: CARBOPLATIN
     Indication: LUNG ADENOCARCINOMA
     Route: 065
     Dates: start: 201501

REACTIONS (4)
  - Lung adenocarcinoma [Fatal]
  - Lung adenocarcinoma [Recovered/Resolved with Sequelae]
  - Skin toxicity [Recovered/Resolved]
  - Diarrhoea [Recovered/Resolved]

NARRATIVE: CASE EVENT DATE: 20141106
